FAERS Safety Report 10185543 (Version 2)
Quarter: 2014Q3

REPORT INFORMATION
  Report Type: Spontaneous
  Country: US (occurrence: US)
  Receive Date: 20140521
  Receipt Date: 20140711
  Transmission Date: 20150326
  Serious: No
  Sender: FDA-Public Use
  Company Number: US-PFIZER INC-2014137206

PATIENT
  Age: 59 Year
  Sex: Female

DRUGS (1)
  1. XALKORI [Suspect]
     Active Substance: CRIZOTINIB
     Dosage: 250 MG, 2X/DAY
     Dates: start: 20140226

REACTIONS (3)
  - Peripheral swelling [Unknown]
  - Vitreous floaters [Unknown]
  - Back pain [Unknown]
